FAERS Safety Report 15946891 (Version 1)
Quarter: 2019Q1

REPORT INFORMATION
  Report Type: Spontaneous
  Country: US (occurrence: US)
  Receive Date: 20190212
  Receipt Date: 20190212
  Transmission Date: 20190417
  Serious: No
  Sender: FDA-Public Use
  Company Number: US-AUROBINDO-AUR-APU-2018-003277

PATIENT
  Sex: Female
  Weight: 89.8 kg

DRUGS (2)
  1. OTEZLA [Concomitant]
     Active Substance: APREMILAST
  2. SIMVASTATIN TABLETS USP 40 MG [Suspect]
     Active Substance: SIMVASTATIN
     Indication: CORONARY ARTERY DISEASE
     Dosage: 40 MG, DAILY
     Route: 065

REACTIONS (1)
  - Myalgia [Not Recovered/Not Resolved]
